FAERS Safety Report 9737077 (Version 2)
Quarter: 2014Q1

REPORT INFORMATION
  Report Type: Spontaneous
  Country: AU (occurrence: AU)
  Receive Date: 20131206
  Receipt Date: 20140122
  Transmission Date: 20141002
  Serious: Yes (Life-Threatening, Hospitalization)
  Sender: FDA-Public Use
  Company Number: AU-BRISTOL-MYERS SQUIBB COMPANY-19873389

PATIENT
  Sex: Female
  Weight: 97 kg

DRUGS (5)
  1. APIXABAN [Suspect]
     Indication: KNEE ARTHROPLASTY
     Route: 048
     Dates: start: 20131021
  2. ASTRIX [Concomitant]
     Indication: PROPHYLAXIS
     Dosage: TABS
     Route: 048
     Dates: end: 20131014
  3. AVAPRO-HCT TABS [Concomitant]
     Indication: HYPERTENSION
     Dosage: 1DF:300/12.5 UNITS.
  4. LOSEC [Concomitant]
     Indication: GASTROOESOPHAGEAL REFLUX DISEASE
     Dosage: TABS
  5. VOLTAREN [Concomitant]
     Indication: PAIN
     Dosage: TABS

REACTIONS (1)
  - Pulmonary embolism [Not Recovered/Not Resolved]
